FAERS Safety Report 5774904-1 (Version None)
Quarter: 2008Q2

REPORT INFORMATION
  Report Type: 
  Country: None (occurrence: None)
  Receive Date: 20080617
  Receipt Date: 20080605
  Transmission Date: 20081010
  Serious: Yes (Other)
  Sender: FDA-Public Use
  Company Number: BR-BAYER-200614727GDS

PATIENT
  Age: 64 Year
  Sex: Female
  Weight: 65 kg

DRUGS (6)
  1. CIPRO [Suspect]
     Indication: PYREXIA
     Dosage: UNIT DOSE: 500 MG
     Route: 048
     Dates: start: 20061005
  2. LEVOTHYROXINE SODIUM [Concomitant]
     Indication: HYPOTHYROIDISM
     Route: 048
  3. ROHYPNOL (FLUNITRAZEPAM) [Concomitant]
     Indication: UNEVALUABLE EVENT
     Dosage: UNIT DOSE: 1 MG
     Route: 048
  4. PLAMET (BROMOPRIDE) [Concomitant]
     Indication: UNEVALUABLE EVENT
     Dosage: UNIT DOSE: 10 MG
     Route: 048
     Dates: start: 20060901
  5. OMEPRAZOLE [Concomitant]
     Indication: PROPHYLAXIS
     Dosage: UNIT DOSE: 20 MG
     Route: 048
     Dates: start: 20060901
  6. MYLANTA PLUS [Concomitant]
     Indication: DYSPEPSIA
     Route: 048

REACTIONS (2)
  - CHROMATURIA [None]
  - SPEECH DISORDER [None]
